FAERS Safety Report 21083923 (Version 1)
Quarter: 2022Q3

REPORT INFORMATION
  Report Type: Spontaneous
  Country: CN (occurrence: CN)
  Receive Date: 20220714
  Receipt Date: 20220714
  Transmission Date: 20221026
  Serious: Yes (Other)
  Sender: FDA-Public Use
  Company Number: None

PATIENT
  Age: 54 Year
  Sex: Female
  Weight: 55 kg

DRUGS (1)
  1. METRONIDAZOLE [Suspect]
     Active Substance: METRONIDAZOLE
     Indication: Cholecystitis acute
     Dosage: 100 ML, QD
     Route: 041
     Dates: start: 20220623, end: 20220623

REACTIONS (4)
  - Cardiac fibrillation [Recovering/Resolving]
  - Body temperature increased [Recovering/Resolving]
  - Tremor [Recovering/Resolving]
  - Chills [Recovering/Resolving]

NARRATIVE: CASE EVENT DATE: 20220623
